FAERS Safety Report 7051399-1 (Version None)
Quarter: 2010Q4

REPORT INFORMATION
  Report Type: 
  Country: None (occurrence: None)
  Receive Date: 20101019
  Receipt Date: 20101015
  Transmission Date: 20110411
  Serious: Yes (Hospitalization)
  Sender: FDA-Public Use
  Company Number: IT-SANOFI-AVENTIS-2010SA045365

PATIENT
  Age: 70 Year
  Sex: Female

DRUGS (3)
  1. TAXOTERE [Suspect]
     Route: 042
     Dates: start: 20100211, end: 20100211
  2. TAXOTERE [Suspect]
     Route: 042
     Dates: start: 20100713, end: 20100713
  3. TRASTUZUMAB [Concomitant]
     Indication: PRODUCT USED FOR UNKNOWN INDICATION
     Route: 042

REACTIONS (7)
  - DYSPNOEA [None]
  - ELECTROLYTE IMBALANCE [None]
  - GASTROENTERITIS [None]
  - HYPOALBUMINAEMIA [None]
  - HYPOPROTEINAEMIA [None]
  - MUCOSAL INFLAMMATION [None]
  - OEDEMA PERIPHERAL [None]
